FAERS Safety Report 21724062 (Version 2)
Quarter: 2023Q1

REPORT INFORMATION
  Report Type: Spontaneous
  Country: US (occurrence: US)
  Receive Date: 20221213
  Receipt Date: 20230308
  Transmission Date: 20230417
  Serious: Yes (Other)
  Sender: FDA-Public Use
  Company Number: US-ALLERGAN-2240175US

PATIENT
  Sex: Male

DRUGS (11)
  1. OZURDEX [Suspect]
     Active Substance: DEXAMETHASONE
     Indication: Retinal vein occlusion
     Dosage: 0.7 MG, SINGLE
     Route: 031
     Dates: start: 20220817, end: 20220817
  2. ATORVASTATIN [Concomitant]
     Active Substance: ATORVASTATIN
     Dosage: 80 MG, QD
     Route: 048
  3. LOSARTAN [Concomitant]
     Active Substance: LOSARTAN
     Dosage: 100 MG, QD
     Route: 048
  4. NOVOLOG [Concomitant]
     Active Substance: INSULIN ASPART
     Dosage: 3 ML, QD
     Route: 058
  5. METFORMIN HYDROCHLORIDE [Concomitant]
     Active Substance: METFORMIN HYDROCHLORIDE
     Dosage: 1000 MG, BID
     Route: 048
  6. ASPIRIN [Concomitant]
     Active Substance: ASPIRIN
     Dosage: 81 MG, QD
     Route: 048
  7. LEVOTHYROXINE SODIUM [Concomitant]
     Active Substance: LEVOTHYROXINE SODIUM
     Dosage: 50 ?G
     Route: 048
  8. ZETIA [Concomitant]
     Active Substance: EZETIMIBE
     Dosage: 10 MG, QD
     Route: 048
  9. CARVEDILOL [Concomitant]
     Active Substance: CARVEDILOL
     Dosage: 12.5 MG, BID
     Route: 048
  10. FENOFIBRATE [Concomitant]
     Active Substance: FENOFIBRATE
     Dosage: 145 MG, QD
     Route: 048
  11. TRESIBA [Concomitant]
     Active Substance: INSULIN DEGLUDEC
     Dosage: 3 ML, SINGLE

REACTIONS (6)
  - Retinal haemorrhage [Recovered/Resolved]
  - Product administered at inappropriate site [Recovered/Resolved]
  - Complication of device insertion [Recovered/Resolved]
  - Retinal injury [Recovered/Resolved]
  - Swelling [Unknown]
  - Erythema [Unknown]

NARRATIVE: CASE EVENT DATE: 20220817
